FAERS Safety Report 6747639-6 (Version None)
Quarter: 2010Q2

REPORT INFORMATION
  Report Type: 
  Country: None (occurrence: None)
  Receive Date: 20100528
  Receipt Date: 20100524
  Transmission Date: 20101027
  Serious: Yes (Hospitalization)
  Sender: FDA-Public Use
  Company Number: PHHO2010CN07802

PATIENT
  Sex: Male
  Weight: 72.5 kg

DRUGS (1)
  1. LDT600 LDT+TAB [Suspect]
     Indication: HEPATITIS B
     Dosage: 600 MG / DAY
     Route: 048
     Dates: start: 20090728

REACTIONS (3)
  - NAUSEA [None]
  - REFLUX GASTRITIS [None]
  - VOMITING [None]
